FAERS Safety Report 5370838-5 (Version None)
Quarter: 2007Q2

REPORT INFORMATION
  Report Type: 
  Country: None (occurrence: None)
  Receive Date: 20070626
  Receipt Date: 20070625
  Transmission Date: 20071010
  Serious: Yes (Other)
  Sender: FDA-Public Use
  Company Number: DE-BRISTOL-MYERS SQUIBB COMPANY-13778279

PATIENT
  Age: 54 Year
  Sex: Female
  Weight: 65 kg

DRUGS (4)
  1. SOTALOL HCL [Suspect]
     Route: 048
  2. CAPTOPRIL AND HYDROCHLOROTHIAZIDE [Suspect]
     Route: 048
  3. INSIDON [Suspect]
     Route: 048
  4. HYDROCHLOROTHIAZIDE [Suspect]
     Route: 048

REACTIONS (3)
  - HYPOTENSION [None]
  - OVERDOSE [None]
  - SUICIDE ATTEMPT [None]
